FAERS Safety Report 8117073-5 (Version None)
Quarter: 2012Q1

REPORT INFORMATION
  Report Type: 
  Country: None (occurrence: None)
  Receive Date: 20120206
  Receipt Date: 20120201
  Transmission Date: 20120608
  Serious: Yes (Other)
  Sender: FDA-Public Use
  Company Number: US-PFIZER INC-2012028283

PATIENT
  Sex: Female

DRUGS (4)
  1. SYNTHROID [Concomitant]
     Indication: HYPOTHYROIDISM
     Dosage: UNK
  2. LYRICA [Suspect]
     Indication: HEADACHE
     Dosage: 50 MG, 2X/DAY
     Route: 048
     Dates: start: 20120130, end: 20120130
  3. LYRICA [Suspect]
     Indication: DIZZINESS
  4. MAXZIDE [Concomitant]
     Dosage: UNK

REACTIONS (4)
  - HEADACHE [None]
  - PAIN IN EXTREMITY [None]
  - ABASIA [None]
  - DIZZINESS [None]
